FAERS Safety Report 17809088 (Version 2)
Quarter: 2020Q2

REPORT INFORMATION
  Report Type: Spontaneous
  Country: US (occurrence: US)
  Receive Date: 20200520
  Receipt Date: 20200527
  Transmission Date: 20200714
  Serious: Yes (Hospitalization)
  Sender: FDA-Public Use
  Company Number: US-CELGENEUS-USA-20200504127

PATIENT
  Age: 83 Year
  Sex: Female
  Weight: 67 kg

DRUGS (59)
  1. PROTONIX [Concomitant]
     Active Substance: PANTOPRAZOLE SODIUM
     Indication: PROPHYLAXIS
     Dosage: 40 MILLIGRAM
     Route: 048
     Dates: start: 20180514
  2. BENZOCAINE. [Concomitant]
     Active Substance: BENZOCAINE
     Indication: MUCOSAL INFLAMMATION
     Route: 048
     Dates: start: 20180519
  3. ONDANSETRON [Concomitant]
     Active Substance: ONDANSETRON
     Dosage: 16 MILLIGRAM
     Route: 048
     Dates: start: 20190330
  4. ACETAMINOPHEN. [Concomitant]
     Active Substance: ACETAMINOPHEN
     Indication: PAIN
     Dosage: 650 MILLIGRAM
     Route: 048
     Dates: start: 20190624
  5. FUROSEMIDE. [Concomitant]
     Active Substance: FUROSEMIDE
     Indication: OEDEMA
     Dosage: 20 MILLIGRAM
     Route: 048
     Dates: start: 20190703, end: 20190703
  6. NORMAL SALINE [Concomitant]
     Active Substance: SODIUM CHLORIDE
     Dosage: 500 MILLILITER
     Route: 041
     Dates: start: 20190705, end: 20190705
  7. ASPIRIN. [Concomitant]
     Active Substance: ASPIRIN
     Indication: CORONARY ARTERY DISEASE
     Dosage: 81 MILLIGRAM
     Route: 048
     Dates: start: 2015
  8. MAGNESIUM HYDROXIDE. [Concomitant]
     Active Substance: MAGNESIUM HYDROXIDE
     Indication: CONSTIPATION
     Dosage: 30 MILLILITER
     Route: 048
     Dates: start: 20180430
  9. ONDANSETRON [Concomitant]
     Active Substance: ONDANSETRON
     Indication: NAUSEA
     Dosage: 4 MILLIGRAM
     Route: 041
     Dates: start: 20190624
  10. OXYCODONE [Concomitant]
     Active Substance: OXYCODONE
     Dosage: 2.5 MILLIGRAM
     Route: 048
     Dates: start: 20190704, end: 20190706
  11. VIDAZA [Suspect]
     Active Substance: AZACITIDINE
     Indication: ACUTE MYELOID LEUKAEMIA
     Dosage: 75 MILLIGRAM/SQ. METER
     Route: 058
     Dates: start: 20180426, end: 20180502
  12. VIDAZA [Suspect]
     Active Substance: AZACITIDINE
     Dosage: 75 MILLIGRAM/SQ. METER
     Route: 041
     Dates: start: 20180606, end: 20181010
  13. VIDAZA [Suspect]
     Active Substance: AZACITIDINE
     Dosage: 37.5 MILLIGRAM/SQ. METER
     Route: 058
     Dates: start: 20190823
  14. VALSARTAN. [Concomitant]
     Active Substance: VALSARTAN
     Indication: HYPERTENSION
     Dosage: 80 MILLIGRAM
     Route: 048
     Dates: start: 2014
  15. FLUTICASONE. [Concomitant]
     Active Substance: FLUTICASONE
     Indication: CHRONIC OBSTRUCTIVE PULMONARY DISEASE
     Route: 045
     Dates: start: 20180426
  16. ZOFRAN [Concomitant]
     Active Substance: ONDANSETRON HYDROCHLORIDE
     Indication: NAUSEA
     Dosage: 16 MILLIGRAM
     Route: 048
     Dates: start: 20191103
  17. ZOFRAN [Concomitant]
     Active Substance: ONDANSETRON HYDROCHLORIDE
     Indication: VOMITING
     Dosage: 4 MILLIGRAM
     Route: 048
     Dates: start: 20180520, end: 20180523
  18. FUROSEMIDE. [Concomitant]
     Active Substance: FUROSEMIDE
     Dosage: 20 MILLIGRAM
     Route: 048
     Dates: start: 20190824
  19. PANTOPRAZOLE [Concomitant]
     Active Substance: PANTOPRAZOLE
     Indication: GASTROOESOPHAGEAL REFLUX DISEASE
     Dosage: 40 MILLIGRAM
     Route: 048
     Dates: start: 20191103
  20. NORMAL SALINE [Concomitant]
     Active Substance: SODIUM CHLORIDE
     Indication: PROPHYLAXIS
     Dosage: 1960 MILLILITER
     Route: 041
     Dates: start: 20180426, end: 20180502
  21. OXYGEN. [Concomitant]
     Active Substance: OXYGEN
     Indication: CHRONIC OBSTRUCTIVE PULMONARY DISEASE
     Dosage: 3 LITERS
     Route: 055
     Dates: start: 2015
  22. UMECLIDINIUM-VILANTEROL [Concomitant]
     Active Substance: UMECLIDINIUM BROMIDE\VILANTEROL TRIFENATATE
     Indication: CHRONIC OBSTRUCTIVE PULMONARY DISEASE
     Dosage: 1 PUFF
     Route: 055
     Dates: start: 20180426
  23. ZOFRAN [Concomitant]
     Active Substance: ONDANSETRON HYDROCHLORIDE
     Indication: PROPHYLAXIS OF NAUSEA AND VOMITING
     Dosage: 16 MILLIGRAM
     Route: 048
     Dates: start: 20180427
  24. SENNA [Concomitant]
     Active Substance: SENNA LEAF\SENNOSIDES\SENNOSIDES A AND B
     Indication: CONSTIPATION
     Dosage: 2 TABLET
     Route: 048
     Dates: start: 20180428
  25. HYDROCORTISONE. [Concomitant]
     Active Substance: HYDROCORTISONE
     Indication: PRURITUS
     Route: 061
     Dates: start: 20180501
  26. LIDOCAINE. [Concomitant]
     Active Substance: LIDOCAINE
     Indication: PAIN
     Dosage: 5 PERCENT
     Route: 062
     Dates: start: 20190220, end: 20190220
  27. DICLOFENAC SODIUM. [Concomitant]
     Active Substance: DICLOFENAC SODIUM
     Indication: PAIN
     Dosage: 1 PERCENT
     Route: 061
     Dates: start: 201902
  28. ACYCLOVIR. [Concomitant]
     Active Substance: ACYCLOVIR
     Dosage: 800 MILLIGRAM
     Route: 048
     Dates: start: 20180524
  29. LEVOFLOXACIN. [Concomitant]
     Active Substance: LEVOFLOXACIN
     Indication: INFECTION PROPHYLAXIS
     Dosage: 500 MILLIGRAM
     Route: 048
     Dates: start: 20190116
  30. FUROSEMIDE. [Concomitant]
     Active Substance: FUROSEMIDE
     Dosage: 20 MILLIGRAM
     Route: 048
     Dates: start: 20181003, end: 20190624
  31. VIDAZA [Suspect]
     Active Substance: AZACITIDINE
     Dosage: 37.5 MILLIGRAM/SQ. METER
     Route: 041
     Dates: start: 20190214, end: 20190716
  32. CYANOCOBALAMIN. [Concomitant]
     Active Substance: CYANOCOBALAMIN
     Indication: ANAEMIA
  33. ZOFRAN [Concomitant]
     Active Substance: ONDANSETRON HYDROCHLORIDE
     Dosage: 4 MILLIGRAM
     Route: 041
     Dates: start: 20180720, end: 20180720
  34. FAMOTIDINE. [Concomitant]
     Active Substance: FAMOTIDINE
     Dosage: 20 MILLIGRAM
     Route: 048
     Dates: start: 20190823
  35. MELATONIN [Concomitant]
     Active Substance: MELATONIN
     Indication: INSOMNIA
     Dosage: 6 MILLIGRAM
     Route: 048
     Dates: start: 20190321
  36. MELATONIN [Concomitant]
     Active Substance: MELATONIN
     Indication: PROPHYLAXIS
     Dosage: 5 MILLIGRAM
     Route: 048
     Dates: start: 20191103
  37. ACYCLOVIR. [Concomitant]
     Active Substance: ACYCLOVIR
     Dosage: 1200 MILLIGRAM
     Route: 048
     Dates: start: 20180516, end: 20180524
  38. MELATONIN [Concomitant]
     Active Substance: MELATONIN
     Dosage: 3 MILLIGRAM
     Route: 048
     Dates: start: 20181210, end: 20181212
  39. OXYCODONE [Concomitant]
     Active Substance: OXYCODONE
     Indication: MUCOSAL INFLAMMATION
     Dosage: 2.5 MILLIGRAM
     Route: 048
     Dates: start: 20191103
  40. OXYCODONE [Concomitant]
     Active Substance: OXYCODONE
     Dosage: 500 MILLIGRAM
     Route: 048
     Dates: start: 20180517, end: 20180524
  41. ANORO ELLIPTA [Concomitant]
     Active Substance: UMECLIDINIUM BROMIDE\VILANTEROL TRIFENATATE
     Indication: CHRONIC OBSTRUCTIVE PULMONARY DISEASE
     Dosage: 62.5-25 UG
     Route: 055
     Dates: start: 20191103
  42. ALLOPURINOL. [Concomitant]
     Active Substance: ALLOPURINOL
     Indication: PROPHYLAXIS
     Dosage: 300 MILLIGRAM
     Route: 048
     Dates: start: 20180426, end: 20180501
  43. ACETYLCYSTEINE. [Concomitant]
     Active Substance: ACETYLCYSTEINE
     Indication: CHRONIC OBSTRUCTIVE PULMONARY DISEASE
     Dosage: 600 MILLIGRAM
     Route: 048
     Dates: start: 201707
  44. METOPROLOL. [Concomitant]
     Active Substance: METOPROLOL
     Indication: HYPERTENSION
     Dosage: 12.5 MILLIGRAM
     Route: 048
     Dates: start: 2014
  45. ZOLOFT [Concomitant]
     Active Substance: SERTRALINE HYDROCHLORIDE
     Indication: DEPRESSION
     Dosage: 50 MILLIGRAM
     Route: 048
     Dates: start: 2014
  46. CALCIUM CARBONATE. [Concomitant]
     Active Substance: CALCIUM CARBONATE
     Indication: GASTROOESOPHAGEAL REFLUX DISEASE
     Dosage: 500 MILLIGRAM
     Route: 048
     Dates: start: 20180426
  47. ZOFRAN [Concomitant]
     Active Substance: ONDANSETRON HYDROCHLORIDE
     Dosage: 16 MILLIGRAM
     Route: 048
     Dates: start: 20180721, end: 20180722
  48. FAMOTIDINE. [Concomitant]
     Active Substance: FAMOTIDINE
     Indication: GASTROOESOPHAGEAL REFLUX DISEASE
     Dosage: 40 MILLIGRAM
     Route: 048
     Dates: start: 20190626
  49. ACYCLOVIR. [Concomitant]
     Active Substance: ACYCLOVIR
     Indication: INFECTION PROPHYLAXIS
     Dosage: 800 MILLIGRAM
     Route: 048
     Dates: start: 20180502, end: 20180515
  50. LEVOFLOXACIN. [Concomitant]
     Active Substance: LEVOFLOXACIN
     Indication: NEUTROPENIA
     Dosage: 500 MILLIGRAM
     Route: 048
     Dates: start: 20180522, end: 20180629
  51. OXYCODONE [Concomitant]
     Active Substance: OXYCODONE
     Indication: BACK PAIN
     Dosage: 9 MILLIGRAM
     Route: 048
     Dates: start: 20190710
  52. GABAPENTIN. [Concomitant]
     Active Substance: GABAPENTIN
     Indication: NEUROPATHY PERIPHERAL
     Dosage: 100 MILLIGRAM
     Route: 048
     Dates: start: 20191103
  53. VIDAZA [Suspect]
     Active Substance: AZACITIDINE
     Dosage: 37 MILLIGRAM/SQ. METER
     Route: 041
     Dates: start: 20181011, end: 20190109
  54. VENETOCLAX (VERUM) [Concomitant]
     Indication: ACUTE MYELOID LEUKAEMIA
     Dosage: 100 MILLIGRAM
     Route: 048
     Dates: start: 20180426, end: 20180426
  55. VENETOCLAX (VERUM) [Concomitant]
     Dosage: 200 MILLIGRAM
     Route: 048
     Dates: start: 20180427, end: 20180427
  56. VENETOCLAX (VERUM) [Concomitant]
     Dosage: 400 MILLIGRAM
     Route: 048
     Dates: start: 20180428
  57. CYANOCOBALAMIN. [Concomitant]
     Active Substance: CYANOCOBALAMIN
     Indication: VITAMIN SUPPLEMENTATION
     Dosage: 500 MILLIGRAM
     Route: 048
     Dates: start: 20180426
  58. LIDOCAINE. [Concomitant]
     Active Substance: LIDOCAINE
     Indication: PAIN
     Dosage: 2.5 PERCENT
     Route: 061
     Dates: start: 20190216
  59. CANNABIDIOL [Concomitant]
     Active Substance: CANNABIDIOL
     Indication: BACK PAIN
     Route: 061
     Dates: start: 20190819

REACTIONS (2)
  - Oedema peripheral [Recovered/Resolved]
  - Dyspnoea [Not Recovered/Not Resolved]

NARRATIVE: CASE EVENT DATE: 20200501
